FAERS Safety Report 6524152-2 (Version None)
Quarter: 2009Q4

REPORT INFORMATION
  Report Type: 
  Country: None (occurrence: None)
  Receive Date: 20091231
  Receipt Date: 20091120
  Transmission Date: 20100525
  Serious: No
  Sender: FDA-Public Use
  Company Number: US-BAYER-200942038NA

PATIENT
  Age: 41 Year
  Sex: Female
  Weight: 61 kg

DRUGS (2)
  1. ULTRAVIST 300 [Suspect]
     Indication: COMPUTERISED TOMOGRAM
     Dosage: TOTAL DAILY DOSE: 92 ML  UNIT DOSE: 200 ML
     Route: 042
     Dates: start: 20091120, end: 20091120
  2. READI-CAT [Concomitant]
     Indication: COMPUTERISED TOMOGRAM ABDOMEN

REACTIONS (4)
  - LIP BLISTER [None]
  - ORAL PRURITUS [None]
  - PARAESTHESIA ORAL [None]
  - RASH MACULAR [None]
